FAERS Safety Report 14197482 (Version 2)
Quarter: 2017Q4

REPORT INFORMATION
  Report Type: Spontaneous
  Country: US (occurrence: US)
  Receive Date: 20171116
  Receipt Date: 20171207
  Transmission Date: 20180321
  Serious: Yes (Other)
  Sender: FDA-Public Use
  Company Number: US-MAYNE PHARMA-2017MYN002151

PATIENT

DRUGS (3)
  1. CLOZAPINE. [Suspect]
     Active Substance: CLOZAPINE
     Indication: PRODUCT USED FOR UNKNOWN INDICATION
     Dosage: UNK
     Dates: end: 20170117
  2. ATIVAN [Concomitant]
     Active Substance: LORAZEPAM
  3. PROLIXIN [Concomitant]
     Active Substance: FLUPHENAZINE HYDROCHLORIDE

REACTIONS (1)
  - Adenocarcinoma gastric [Unknown]

NARRATIVE: CASE EVENT DATE: 201201
